FAERS Safety Report 6144708-9 (Version None)
Quarter: 2009Q2

REPORT INFORMATION
  Report Type: 
  Country: None (occurrence: None)
  Receive Date: 20090406
  Receipt Date: 20090402
  Transmission Date: 20091009
  Serious: Yes (Hospitalization)
  Sender: FDA-Public Use
  Company Number: B0568490A

PATIENT
  Age: 69 Year
  Sex: Female

DRUGS (1)
  1. AMOXICILLIN AND CLAVULANATE POTASSIUM [Suspect]
     Indication: SINUSITIS

REACTIONS (18)
  - ABDOMINAL PAIN [None]
  - ACUTE HEPATIC FAILURE [None]
  - ALANINE AMINOTRANSFERASE INCREASED [None]
  - ASPARTATE AMINOTRANSFERASE INCREASED [None]
  - BLOOD ALKALINE PHOSPHATASE INCREASED [None]
  - C-REACTIVE PROTEIN INCREASED [None]
  - CHOLELITHIASIS [None]
  - CHOLESTASIS [None]
  - CHROMATURIA [None]
  - EOSINOPHILIA [None]
  - HEPATITIS [None]
  - HYPERBILIRUBINAEMIA [None]
  - HYPERCOAGULATION [None]
  - JAUNDICE [None]
  - NAUSEA [None]
  - PRURITUS [None]
  - RED BLOOD CELL SEDIMENTATION RATE INCREASED [None]
  - URTICARIA [None]
